FAERS Safety Report 9436563 (Version 1)
Quarter: 2013Q3

REPORT INFORMATION
  Report Type: Spontaneous
  Country: US (occurrence: US)
  Receive Date: 20130802
  Receipt Date: 20130802
  Transmission Date: 20140515
  Serious: No
  Sender: FDA-Public Use
  Company Number: US-OPTIMER-20130190

PATIENT
  Age: 50 Year
  Sex: Female

DRUGS (3)
  1. FIDAXOMICIN [Suspect]
     Indication: CLOSTRIDIUM DIFFICILE COLITIS
     Dosage: UNK
     Dates: start: 20120228, end: 20120309
  2. DORIPENEM [Concomitant]
     Dosage: UNK
     Dates: start: 20120227, end: 20120301
  3. TOBRAMYCIN [Concomitant]
     Dosage: UNK
     Dates: start: 20120227, end: 20120301

REACTIONS (1)
  - Blood creatinine increased [Unknown]
